FAERS Safety Report 7302904-9 (Version None)
Quarter: 2011Q1

REPORT INFORMATION
  Report Type: 
  Country: None (occurrence: None)
  Receive Date: 20110218
  Receipt Date: 20110211
  Transmission Date: 20110831
  Serious: Yes (Hospitalization)
  Sender: FDA-Public Use
  Company Number: CA-MERCK-1102USA01601

PATIENT
  Age: 53 Year
  Sex: Female
  Weight: 86 kg

DRUGS (7)
  1. CALCIUM CARBONATE [Concomitant]
     Route: 065
  2. CITALOPRAM [Concomitant]
     Route: 048
  3. VITAMINS (UNSPECIFIED) [Concomitant]
     Route: 065
  4. CELEBREX [Concomitant]
     Route: 048
  5. WELLBUTRIN [Concomitant]
     Route: 048
  6. FOSAMAX [Suspect]
     Route: 048
  7. TRIAZIDE [Concomitant]
     Route: 048

REACTIONS (1)
  - FEMUR FRACTURE [None]
